FAERS Safety Report 10084520 (Version 1)
Quarter: 2014Q2

REPORT INFORMATION
  Report Type: Spontaneous
  Country: GB (occurrence: GB)
  Receive Date: 20140417
  Receipt Date: 20140417
  Transmission Date: 20141212
  Serious: Yes (Disabling, Congenital Anomaly)
  Sender: FDA-Public Use
  Company Number: GB-ABBVIE-14P-167-1226245-00

PATIENT
  Sex: Male

DRUGS (1)
  1. EPILIM [Suspect]
     Indication: MATERNAL EXPOSURE TIMING UNSPECIFIED
     Route: 064

REACTIONS (13)
  - Foetal anticonvulsant syndrome [Not Recovered/Not Resolved]
  - Motor dysfunction [Not Recovered/Not Resolved]
  - Disturbance in attention [Not Recovered/Not Resolved]
  - Memory impairment [Not Recovered/Not Resolved]
  - Mental impairment [Recovering/Resolving]
  - Speech disorder developmental [Not Recovered/Not Resolved]
  - Visual impairment [Not Recovered/Not Resolved]
  - Hypotonia [Not Recovered/Not Resolved]
  - Limb malformation [Not Recovered/Not Resolved]
  - White matter lesion [Not Recovered/Not Resolved]
  - Congenital cerebral cyst [Not Recovered/Not Resolved]
  - Autism [Not Recovered/Not Resolved]
  - Developmental delay [Not Recovered/Not Resolved]
